FAERS Safety Report 7591064-5 (Version None)
Quarter: 2011Q3

REPORT INFORMATION
  Report Type: 
  Country: None (occurrence: None)
  Receive Date: 20110705
  Receipt Date: 20110627
  Transmission Date: 20111222
  Serious: Yes (Hospitalization, Disabling)
  Sender: FDA-Public Use
  Company Number: US-MERCK-1103USA03917

PATIENT
  Age: 75 Year
  Sex: Female

DRUGS (9)
  1. LYRICA [Concomitant]
     Route: 065
  2. LASIX [Concomitant]
     Indication: HYPERTENSION
     Route: 065
  3. ZOCOR [Suspect]
     Indication: BLOOD CHOLESTEROL
     Route: 048
     Dates: start: 20080101, end: 20110325
  4. ASPIRIN [Concomitant]
     Route: 065
  5. URO-MAG CAPSULES [Concomitant]
     Route: 065
  6. VITAMIN D (UNSPECIFIED) [Concomitant]
     Route: 065
  7. LOPID [Concomitant]
     Route: 065
  8. PRILOSEC [Concomitant]
     Route: 065
  9. GLUCOPHAGE [Concomitant]
     Route: 065

REACTIONS (9)
  - ABDOMINAL PAIN LOWER [None]
  - MOVEMENT DISORDER [None]
  - ABASIA [None]
  - NAUSEA [None]
  - DYSSTASIA [None]
  - EATING DISORDER [None]
  - CONSTIPATION [None]
  - HEADACHE [None]
  - HEPATIC FUNCTION ABNORMAL [None]
